FAERS Safety Report 5794740-X (Version None)
Quarter: 2008Q2

REPORT INFORMATION
  Report Type: 
  Country: None (occurrence: None)
  Receive Date: 20080630
  Receipt Date: 20080617
  Transmission Date: 20081010
  Serious: Yes (Hospitalization, Other)
  Sender: FDA-Public Use
  Company Number: US-AVENTIS-200813517US

PATIENT
  Age: 51 Year
  Sex: Female

DRUGS (8)
  1. LEFLUNOMIDE [Suspect]
     Route: 048
  2. LEFLUNOMIDE [Suspect]
     Dosage: DOSE: 20 MG/D TITRATED ON THE BASIS OF THE LEVELS.
  3. TACROLIMUS [Suspect]
     Dosage: DOSE: UNK
  4. THYMOGLOBULIN [Suspect]
     Dosage: DOSE: UNK
  5. MYCOPHENOLATE MOFETIL [Suspect]
     Dosage: DOSE: UNK
  6. CORTICOSTEROIDS [Concomitant]
     Dosage: DOSE: UNK
  7. IVIGG [Concomitant]
     Dosage: DOSE: UNK
     Route: 042
  8. RITUXIMAB [Concomitant]
     Dosage: DOSE: UNK

REACTIONS (8)
  - BLOOD CREATININE INCREASED [None]
  - BLOOD LACTATE DEHYDROGENASE INCREASED [None]
  - ECCHYMOSIS [None]
  - HAEMOLYSIS [None]
  - OFF LABEL USE [None]
  - OVERDOSE [None]
  - THROMBOCYTOPENIA [None]
  - THROMBOTIC MICROANGIOPATHY [None]
